FAERS Safety Report 7836093-9 (Version None)
Quarter: 2011Q4

REPORT INFORMATION
  Report Type: 
  Country: None (occurrence: None)
  Receive Date: 20111024
  Receipt Date: 20101027
  Transmission Date: 20120403
  Serious: No
  Sender: FDA-Public Use
  Company Number: US-ABBOTT-10P-163-0681797-00

PATIENT
  Age: 44 Year
  Sex: Female

DRUGS (4)
  1. GCSF (STERIOD) [Concomitant]
     Indication: WHITE BLOOD CELL COUNT ABNORMAL
  2. LUPRON [Suspect]
     Indication: PRODUCT USED FOR UNKNOWN INDICATION
  3. FEMARA [Concomitant]
     Indication: PRODUCT USED FOR UNKNOWN INDICATION
  4. CHEMO [Concomitant]
     Indication: PRODUCT USED FOR UNKNOWN INDICATION

REACTIONS (8)
  - FEELING ABNORMAL [None]
  - PAIN [None]
  - MOANING [None]
  - IRRITABILITY [None]
  - FATIGUE [None]
  - HOT FLUSH [None]
  - WEIGHT INCREASED [None]
  - LIBIDO DECREASED [None]
